FAERS Safety Report 4385053-1 (Version None)
Quarter: 2004Q2

REPORT INFORMATION
  Report Type: 
  Country: None (occurrence: None)
  Receive Date: 20040623
  Receipt Date: 20040623
  Transmission Date: 20050107
  Serious: No
  Sender: FDA-Public Use
  Company Number: None

PATIENT
  Age: 44 Year
  Sex: Female
  Weight: 94 kg

DRUGS (1)
  1. DROTRECOGIN ALFA [Suspect]
     Indication: SEPSIS
     Dosage: 20 MG IV CI
     Route: 042
     Dates: start: 20040609, end: 20040611

REACTIONS (1)
  - EAR HAEMORRHAGE [None]
